FAERS Safety Report 8600548-X (Version None)
Quarter: 2012Q3

REPORT INFORMATION
  Report Type: 
  Country: None (occurrence: None)
  Receive Date: 20120808
  Receipt Date: 20120808
  Transmission Date: 20120928
  Serious: Yes (Other)
  Sender: FDA-Public Use
  Company Number: None

PATIENT
  Sex: Female
  Weight: 97.5234 kg

DRUGS (4)
  1. NAVANE [Suspect]
     Indication: DELUSION
     Dosage: 2MG 1 A DAY BY MOUTH THEN INCREASE TO 2 A DAY
     Route: 048
     Dates: start: 19960201, end: 19970601
  2. NAVANE [Suspect]
     Indication: SCHIZOAFFECTIVE DISORDER
     Dosage: 2MG 1 A DAY BY MOUTH THEN INCREASE TO 2 A DAY
     Route: 048
     Dates: start: 19960201, end: 19970601
  3. NAVANE [Suspect]
     Indication: DELUSION
     Dosage: 2MG 1 A DAY BY MOUTH THEN INCREASE TO 2 A DAY
     Route: 048
     Dates: start: 20120601
  4. NAVANE [Suspect]
     Indication: SCHIZOAFFECTIVE DISORDER
     Dosage: 2MG 1 A DAY BY MOUTH THEN INCREASE TO 2 A DAY
     Route: 048
     Dates: start: 20120601

REACTIONS (2)
  - DYSKINESIA [None]
  - MUSCLE SPASMS [None]
